FAERS Safety Report 10397976 (Version 3)
Quarter: 2017Q3

REPORT INFORMATION
  Report Type: Report from Study
  Country: US (occurrence: US)
  Receive Date: 20140821
  Receipt Date: 20170802
  Transmission Date: 20171127
  Serious: Yes (Hospitalization)
  Sender: FDA-Public Use
  Company Number: US-UCBSA-2014009089

PATIENT
  Age: 2 Year
  Sex: Male
  Weight: 3.59 kg

DRUGS (6)
  1. PRENATAL VITAMINS [Concomitant]
     Active Substance: VITAMINS
     Indication: PRODUCT USED FOR UNKNOWN INDICATION
     Dosage: 1 DF, ONCE DAILY (QD)
     Route: 064
     Dates: start: 20131021, end: 20140626
  2. MEDROL [Concomitant]
     Active Substance: METHYLPREDNISOLONE
     Indication: CROHN^S DISEASE
     Dosage: 84 MG, 2X/DAY (BID)
     Route: 064
     Dates: start: 20140301, end: 20140401
  3. CAFFEINE. [Concomitant]
     Active Substance: CAFFEINE
     Indication: PRODUCT USED FOR UNKNOWN INDICATION
     Dosage: 0.5SERVIN MONTHLY (QM)
     Route: 064
     Dates: end: 20140626
  4. CERTOLIZUMAB PEGOL RA [Suspect]
     Active Substance: CERTOLIZUMAB PEGOL
     Indication: CROHN^S DISEASE
     Dosage: 200 MG, EV 2 WEEKS(QOW)
     Route: 064
     Dates: start: 20130928, end: 20140626
  5. VITAMIN D3 [Concomitant]
     Active Substance: CHOLECALCIFEROL
     Indication: PRODUCT USED FOR UNKNOWN INDICATION
     Dosage: 4000 IU, ONCE DAILY (QD)
     Route: 064
     Dates: end: 20131020
  6. TUMS [Concomitant]
     Active Substance: CALCIUM CARBONATE
     Indication: DYSPEPSIA
     Dosage: 1 PILL AS NEEDED (PRN)
     Route: 064
     Dates: start: 20140501, end: 20140626

REACTIONS (5)
  - Feeding disorder [Unknown]
  - Jaundice neonatal [Unknown]
  - Blood glucose decreased [Unknown]
  - Foetal exposure during pregnancy [Unknown]
  - Dehydration [Unknown]

NARRATIVE: CASE EVENT DATE: 20130928
